FAERS Safety Report 25555387 (Version 1)
Quarter: 2025Q3

REPORT INFORMATION
  Report Type: Spontaneous
  Country: JP (occurrence: JP)
  Receive Date: 20250715
  Receipt Date: 20250715
  Transmission Date: 20251020
  Serious: Yes (Death, Hospitalization, Other)
  Sender: OTSUKA
  Company Number: None

PATIENT
  Age: 71 Year
  Sex: Female
  Weight: 36.2 kg

DRUGS (33)
  1. REXULTI [Suspect]
     Active Substance: BREXPIPRAZOLE
     Indication: Schizophrenia
     Dosage: 1.5 MG, EVERY 1 DAY
     Route: 048
     Dates: start: 20231218
  2. REXULTI [Suspect]
     Active Substance: BREXPIPRAZOLE
     Dosage: 2 MG, EVERY 1 DAY
     Route: 048
     Dates: end: 20250203
  3. DIAZEPAM [Suspect]
     Active Substance: DIAZEPAM
     Indication: Product used for unknown indication
     Dosage: 2 MG, EVERY 1 DAY
     Route: 048
     Dates: start: 20241205, end: 20250131
  4. DIAZEPAM [Suspect]
     Active Substance: DIAZEPAM
     Dosage: 1 MG, EVERY 1 DAY
     Route: 048
     Dates: end: 20241204
  5. DIAZEPAM [Suspect]
     Active Substance: DIAZEPAM
     Dosage: 1 MG, EVERY 1 DAY
     Route: 048
     Dates: start: 20250201, end: 20250203
  6. LATUDA [Suspect]
     Active Substance: LURASIDONE HYDROCHLORIDE
     Indication: Schizophrenia
     Dosage: 20 MG, EVERY 1 DAY
     Route: 048
     Dates: start: 20250108, end: 20250109
  7. LATUDA [Suspect]
     Active Substance: LURASIDONE HYDROCHLORIDE
     Dosage: 40 MG, EVERY 1 DAY
     Route: 048
     Dates: start: 20241219, end: 20241225
  8. LATUDA [Suspect]
     Active Substance: LURASIDONE HYDROCHLORIDE
     Dosage: 60 MG, EVERY 1 DAY
     Route: 048
     Dates: start: 20241226, end: 20250101
  9. LATUDA [Suspect]
     Active Substance: LURASIDONE HYDROCHLORIDE
     Dosage: 80 MG, EVERY 1 DAY
     Route: 048
     Dates: start: 20250102, end: 20250103
  10. LATUDA [Suspect]
     Active Substance: LURASIDONE HYDROCHLORIDE
     Dosage: 60 MG, EVERY 1 DAY
     Route: 048
     Dates: start: 20250104, end: 20250105
  11. LATUDA [Suspect]
     Active Substance: LURASIDONE HYDROCHLORIDE
     Dosage: 40 MG, EVERY 1 DAY
     Route: 048
     Dates: start: 20250106, end: 20250107
  12. BLONANSERIN [Suspect]
     Active Substance: BLONANSERIN
     Indication: Schizophrenia
     Dosage: 30 MG, EVERY 1 DAY
     Route: 062
     Dates: start: 20241121, end: 20250131
  13. BLONANSERIN [Suspect]
     Active Substance: BLONANSERIN
     Dosage: 20 MG, EVERY 1 DAY
     Route: 062
     Dates: start: 20241010, end: 20241016
  14. BLONANSERIN [Suspect]
     Active Substance: BLONANSERIN
     Dosage: 30 MG, EVERY 1 DAY
     Route: 062
     Dates: start: 20241017, end: 20241023
  15. BLONANSERIN [Suspect]
     Active Substance: BLONANSERIN
     Dosage: 40 MG, EVERY 1 DAY
     Route: 062
     Dates: start: 20241024, end: 20241120
  16. BLONANSERIN [Suspect]
     Active Substance: BLONANSERIN
     Dosage: 20 MG, EVERY 1 DAY
     Route: 062
     Dates: start: 20250201, end: 20250202
  17. ACHROMYCIN [Concomitant]
     Active Substance: TETRACYCLINE HYDROCHLORIDE
     Indication: Product used for unknown indication
     Dosage: 30 G, EVERY 1 DAY
     Route: 003
     Dates: start: 20241210, end: 20241210
  18. ARICEPT [Concomitant]
     Active Substance: DONEPEZIL HYDROCHLORIDE
     Indication: Product used for unknown indication
     Dosage: 3 MG, EVERY 1 DAY
     Route: 048
     Dates: start: 20250116, end: 20250122
  19. ARICEPT [Concomitant]
     Active Substance: DONEPEZIL HYDROCHLORIDE
     Dosage: 5 MG, EVERY 1 DAY
     Route: 048
     Dates: start: 20250123, end: 20250203
  20. GUAIAZULENE [Concomitant]
     Active Substance: GUAIAZULENE
     Indication: Product used for unknown indication
     Dosage: 30 G, EVERY 1 DAY
     Route: 003
     Dates: start: 20241210, end: 20241210
  21. DAYVIGO [Concomitant]
     Active Substance: LEMBOREXANT
     Indication: Product used for unknown indication
     Dosage: 10 MG, EVERY 1 DAY
     Route: 048
     Dates: end: 20250203
  22. ELOBIXIBAT [Concomitant]
     Active Substance: ELOBIXIBAT
     Indication: Product used for unknown indication
     Dosage: 10 MG, EVERY 1 DAY
     Route: 048
     Dates: end: 20250203
  23. PROMETHAZINE HYDROCHLORIDE [Concomitant]
     Active Substance: PROMETHAZINE HYDROCHLORIDE
     Indication: Product used for unknown indication
     Dosage: 75 MG, EVERY 1 DAY
     Route: 048
     Dates: end: 20250202
  24. PROMETHAZINE HYDROCHLORIDE [Concomitant]
     Active Substance: PROMETHAZINE HYDROCHLORIDE
     Dosage: 50 MG, EVERY 1 DAY
     Route: 048
     Dates: start: 20250203, end: 20250203
  25. SODIUM BICARBONATE;SODIUM PHOSPHATE MONOBASIC [Concomitant]
     Indication: Product used for unknown indication
     Route: 054
  26. LUNESTA [Concomitant]
     Active Substance: ESZOPICLONE
     Indication: Product used for unknown indication
     Dosage: 2 MG, EVERY 1 DAY
     Route: 048
     Dates: end: 20250203
  27. MAGNESIUM OXIDE [Concomitant]
     Active Substance: MAGNESIUM OXIDE
     Indication: Product used for unknown indication
     Dosage: 1.5 G, EVERY 1 DAY
     Route: 048
     Dates: end: 20250202
  28. MAGNESIUM OXIDE [Concomitant]
     Active Substance: MAGNESIUM OXIDE
     Dosage: 1 G, EVERY 1 DAY
     Route: 048
     Dates: start: 20250203, end: 20250203
  29. GLUTAMINE\SODIUM GUALENATE MONOHYDRATE [Concomitant]
     Active Substance: GLUTAMINE\SODIUM GUALENATE MONOHYDRATE
     Indication: Product used for unknown indication
     Dosage: 1.5 DF, EVERY 1 DAY
     Route: 048
     Dates: end: 20250202
  30. GLUTAMINE\SODIUM GUALENATE MONOHYDRATE [Concomitant]
     Active Substance: GLUTAMINE\SODIUM GUALENATE MONOHYDRATE
     Dosage: 1 DF, EVERY 1 DAY
     Route: 048
     Dates: start: 20250203, end: 20250203
  31. QUETIAPINE FUMARATE [Concomitant]
     Active Substance: QUETIAPINE FUMARATE
     Indication: Restlessness
     Route: 048
     Dates: start: 20241215
  32. TRAZODONE HYDROCHLORIDE [Concomitant]
     Active Substance: TRAZODONE HYDROCHLORIDE
     Indication: Product used for unknown indication
     Dosage: 100 MG, EVERY 1 DAY
     Route: 048
     Dates: end: 20250203
  33. ZYPREXA [Concomitant]
     Active Substance: OLANZAPINE
     Indication: Product used for unknown indication
     Dosage: 5 MG, EVERY 1 DAY
     Route: 048
     Dates: end: 20241218

REACTIONS (3)
  - Pneumonia aspiration [Fatal]
  - Drug-induced liver injury [Not Recovered/Not Resolved]
  - Parkinsonism [Unknown]

NARRATIVE: CASE EVENT DATE: 20250104
